FAERS Safety Report 13428697 (Version 3)
Quarter: 2017Q2

REPORT INFORMATION
  Report Type: Spontaneous
  Country: US (occurrence: US)
  Receive Date: 20170411
  Receipt Date: 20170602
  Transmission Date: 20170830
  Serious: Yes (Other)
  Sender: FDA-Public Use
  Company Number: US-BAYER-2017-069105

PATIENT
  Sex: Female
  Weight: 116 kg

DRUGS (1)
  1. MIRENA [Suspect]
     Active Substance: LEVONORGESTREL
     Indication: CONTRACEPTION
     Dosage: 20 MCG/24HR, CONT
     Route: 015
     Dates: start: 2012, end: 20170515

REACTIONS (3)
  - Device use issue [None]
  - Device difficult to use [None]
  - Embedded device [Recovered/Resolved]

NARRATIVE: CASE EVENT DATE: 2017
